FAERS Safety Report 6526673-5 (Version None)
Quarter: 2010Q1

REPORT INFORMATION
  Report Type: 
  Country: None (occurrence: None)
  Receive Date: 20100104
  Receipt Date: 20100104
  Transmission Date: 20100710
  Serious: Yes (Other)
  Sender: FDA-Public Use
  Company Number: None

PATIENT
  Sex: Male
  Weight: 113.3993 kg

DRUGS (2)
  1. TOLECTIN [Suspect]
     Indication: OSTEOARTHRITIS
     Dosage: 400 MG 3/DAY
     Dates: end: 19650101
  2. COREG [Suspect]
     Indication: ATRIAL FIBRILLATION
     Dosage: 25 MG 2 DAY
     Dates: start: 20060930

REACTIONS (5)
  - ATRIAL FIBRILLATION [None]
  - CONSTIPATION [None]
  - DIARRHOEA [None]
  - DIZZINESS [None]
  - RENAL FAILURE [None]
